FAERS Safety Report 16236991 (Version 2)
Quarter: 2019Q2

REPORT INFORMATION
  Report Type: Spontaneous
  Country: US (occurrence: US)
  Receive Date: 20190425
  Receipt Date: 20190514
  Transmission Date: 20190711
  Serious: Yes (Hospitalization)
  Sender: FDA-Public Use
  Company Number: US-TEVA-2019-US-1041300

PATIENT
  Age: 54 Year
  Sex: Female

DRUGS (2)
  1. FENOFIBRATE NANOCRYSTALS [Concomitant]
     Indication: TYPE IV HYPERLIPIDAEMIA
     Dosage: 145 MILLIGRAM DAILY;
     Route: 065
  2. PREDNISONE. [Suspect]
     Active Substance: PREDNISONE
     Indication: CHRONIC OBSTRUCTIVE PULMONARY DISEASE
     Dosage: 50 MILLIGRAM DAILY; THE WOMAN WAS PRESCRIBED A 7-DAY COURSE OF PREDNISONE
     Route: 065

REACTIONS (1)
  - Pancreatitis acute [Unknown]
